FAERS Safety Report 22219703 (Version 1)
Quarter: 2023Q2

REPORT INFORMATION
  Report Type: Spontaneous
  Country: JP (occurrence: JP)
  Receive Date: 20230417
  Receipt Date: 20230417
  Transmission Date: 20230722
  Serious: Yes (Other)
  Sender: FDA-Public Use
  Company Number: JP-BAYER-2023A017051

PATIENT
  Age: 2 Decade
  Sex: Male

DRUGS (1)
  1. VITRAKVI [Suspect]
     Active Substance: LAROTRECTINIB
     Indication: Osteosarcoma
     Dosage: DAILY DOSE 100 MG
     Dates: start: 20230124, end: 20230331

REACTIONS (3)
  - Osteosarcoma [Not Recovered/Not Resolved]
  - Metastases to lung [Not Recovered/Not Resolved]
  - Neutrophil count decreased [Not Recovered/Not Resolved]

NARRATIVE: CASE EVENT DATE: 20230207
